FAERS Safety Report 13721357 (Version 1)
Quarter: 2017Q3

REPORT INFORMATION
  Report Type: Spontaneous
  Country: US (occurrence: US)
  Receive Date: 20170705
  Receipt Date: 20170705
  Transmission Date: 20171127
  Serious: Yes (Other)
  Sender: FDA-Public Use
  Company Number: None

PATIENT
  Age: 55 Year
  Sex: Male
  Weight: 92.25 kg

DRUGS (3)
  1. VYVANSE [Concomitant]
     Active Substance: LISDEXAMFETAMINE DIMESYLATE
  2. LEVOTHOROXINE [Concomitant]
  3. LEVOTHYROXINE 125 MCG [Suspect]
     Active Substance: LEVOTHYROXINE SODIUM
     Indication: THYROIDECTOMY
     Dosage: ?          QUANTITY:90 TABLET(S);?
     Route: 048
     Dates: end: 20140319

REACTIONS (3)
  - Blood thyroid stimulating hormone increased [None]
  - Fatigue [None]
  - Suspected counterfeit product [None]

NARRATIVE: CASE EVENT DATE: 20170131
